FAERS Safety Report 4529144-0 (Version None)
Quarter: 2004Q4

REPORT INFORMATION
  Report Type: 
  Country: None (occurrence: None)
  Receive Date: 20041214
  Receipt Date: 20041208
  Transmission Date: 20050328
  Serious: Yes (Other)
  Sender: FDA-Public Use
  Company Number: 2004106502

PATIENT
  Sex: Female

DRUGS (1)
  1. CITALOR 9ATORVASTATIN) [Suspect]
     Indication: DYSLIPIDAEMIA
     Dosage: 10 MG (10 MG, SINGLE INTERVAL: EVERY DAY), ORAL
     Route: 048

REACTIONS (2)
  - BONE NEOPLASM [None]
  - PAIN [None]
